FAERS Safety Report 8154654-7 (Version None)
Quarter: 2012Q1

REPORT INFORMATION
  Report Type: 
  Country: None (occurrence: None)
  Receive Date: 20120221
  Receipt Date: 20120216
  Transmission Date: 20120608
  Serious: Yes (Death)
  Sender: FDA-Public Use
  Company Number: PHHY2012US014412

PATIENT
  Sex: Male

DRUGS (3)
  1. VANCOMYCIN [Suspect]
  2. CUBICIN [Suspect]
     Dosage: 6 MG/KG, UNK
     Dates: start: 20110101
  3. LINEZOLID [Suspect]

REACTIONS (1)
  - EOSINOPHILIC PNEUMONIA [None]
